FAERS Safety Report 13200173 (Version 2)
Quarter: 2017Q1

REPORT INFORMATION
  Report Type: Other
  Country: US (occurrence: US)
  Receive Date: 20170208
  Receipt Date: 20170303
  Transmission Date: 20170428
  Serious: No
  Sender: FDA-Public Use
  Company Number: US-SHIRE-US201701853

PATIENT
  Age: 77 Year
  Sex: Female
  Weight: 77.98 kg

DRUGS (5)
  1. VITAMIN D                          /00107901/ [Concomitant]
     Active Substance: ERGOCALCIFEROL
     Indication: CARDIAC DISORDER
  2. VYVANSE [Suspect]
     Active Substance: LISDEXAMFETAMINE DIMESYLATE
     Indication: ATTENTION DEFICIT/HYPERACTIVITY DISORDER
     Dosage: 30 MG, 1X/DAY:QD
     Route: 048
     Dates: start: 201607
  3. VYVANSE [Suspect]
     Active Substance: LISDEXAMFETAMINE DIMESYLATE
     Indication: BINGE EATING
  4. VITAMIN D                          /00107901/ [Concomitant]
     Active Substance: ERGOCALCIFEROL
     Indication: BONE LOSS
     Dosage: 50000 MG, 1X/WEEK
     Route: 065
     Dates: start: 201612
  5. LISINOPRIL. [Concomitant]
     Active Substance: LISINOPRIL
     Indication: OEDEMA PERIPHERAL
     Dosage: 12.5 MG, UNKNOWN
     Route: 065
     Dates: start: 2011

REACTIONS (5)
  - Disturbance in attention [Unknown]
  - Increased appetite [Not Recovered/Not Resolved]
  - Drug ineffective [Unknown]
  - Fatigue [Not Recovered/Not Resolved]
  - Somnolence [Unknown]

NARRATIVE: CASE EVENT DATE: 201612
